FAERS Safety Report 5700477-5 (Version None)
Quarter: 2008Q2

REPORT INFORMATION
  Report Type: 
  Country: None (occurrence: None)
  Receive Date: 20080410
  Receipt Date: 20080331
  Transmission Date: 20081010
  Serious: Yes (Other)
  Sender: FDA-Public Use
  Company Number: US-JNJFOC-20080401018

PATIENT
  Sex: Male
  Weight: 88.45 kg

DRUGS (3)
  1. DURAGESIC-100 [Suspect]
     Dosage: 2 X 12.5 UG/HR PATCHES
     Route: 062
  2. DURAGESIC-100 [Suspect]
     Route: 062
  3. DURAGESIC-100 [Suspect]
     Indication: PAIN
     Route: 062

REACTIONS (6)
  - DEHYDRATION [None]
  - DRUG EFFECT DECREASED [None]
  - FATIGUE [None]
  - INCORRECT DRUG ADMINISTRATION DURATION [None]
  - SYNCOPE [None]
  - TREATMENT NONCOMPLIANCE [None]
